FAERS Safety Report 14662123 (Version 1)
Quarter: 2018Q1

REPORT INFORMATION
  Report Type: Spontaneous
  Country: US (occurrence: US)
  Receive Date: 20180321
  Receipt Date: 20180321
  Transmission Date: 20180509
  Serious: Yes (Hospitalization)
  Sender: FDA-Public Use
  Company Number: US-SUN PHARMACEUTICAL INDUSTRIES LTD-2018US-167578

PATIENT
  Age: 75 Year
  Sex: Female

DRUGS (1)
  1. FERROUS SULFATE. [Suspect]
     Active Substance: FERROUS SULFATE
     Indication: IRON DEFICIENCY ANAEMIA
     Dosage: UNK, BID
     Route: 048

REACTIONS (4)
  - Impaired gastric emptying [Unknown]
  - Post procedural bile leak [Unknown]
  - Gastritis [Unknown]
  - Duodenal stenosis [Unknown]
